FAERS Safety Report 12215976 (Version 1)
Quarter: 2016Q1

REPORT INFORMATION
  Report Type: Other
  Country: US (occurrence: US)
  Receive Date: 20160328
  Receipt Date: 20160328
  Transmission Date: 20160526
  Serious: No
  Sender: FDA-Public Use
  Company Number: US-LUPIN PHARMACEUTICALS INC.-2015-04566

PATIENT
  Age: 35 Year
  Sex: Female

DRUGS (2)
  1. TOPIRAMATE. [Suspect]
     Active Substance: TOPIRAMATE
     Indication: ALCOHOL ABUSE
  2. TOPIRAMATE. [Suspect]
     Active Substance: TOPIRAMATE
     Indication: BULIMIA NERVOSA
     Route: 065

REACTIONS (1)
  - Visual perseveration [Unknown]
